FAERS Safety Report 25512451 (Version 2)
Quarter: 2025Q3

REPORT INFORMATION
  Report Type: Report from Study
  Country: EU (occurrence: EU)
  Receive Date: 20250703
  Receipt Date: 20250722
  Transmission Date: 20251020
  Serious: Yes (Other)
  Sender: GILEAD
  Company Number: EU-GILEAD-2025-0718783

PATIENT
  Sex: Male

DRUGS (2)
  1. BULEVIRTIDE [Suspect]
     Active Substance: BULEVIRTIDE
     Indication: Hepatitis D
     Route: 065
  2. TENOFOVIR DISOPROXIL FUMARATE [Suspect]
     Active Substance: TENOFOVIR DISOPROXIL FUMARATE
     Indication: Hepatitis D
     Route: 065

REACTIONS (1)
  - Disease progression [Unknown]
